FAERS Safety Report 5661194-3 (Version None)
Quarter: 2008Q1

REPORT INFORMATION
  Report Type: 
  Country: None (occurrence: None)
  Receive Date: 20080311
  Receipt Date: 20080306
  Transmission Date: 20080703
  Serious: Yes (Other)
  Sender: FDA-Public Use
  Company Number: PHHY2008JP02760

PATIENT

DRUGS (3)
  1. COMTAN [Suspect]
     Route: 048
  2. CARBIDOPA AND LEVODOPA [Suspect]
     Route: 048
  3. SELEGILINE HCL [Suspect]
     Route: 048

REACTIONS (1)
  - TACHYCARDIA [None]
